FAERS Safety Report 5395810-0 (Version None)
Quarter: 2007Q3

REPORT INFORMATION
  Report Type: 
  Country: None (occurrence: None)
  Receive Date: 20070724
  Receipt Date: 20070712
  Transmission Date: 20080115
  Serious: Yes (Death, Other)
  Sender: FDA-Public Use
  Company Number: US-PFIZER INC-2006118932

PATIENT
  Sex: Male

DRUGS (4)
  1. CELEBREX [Suspect]
     Indication: GOUT
     Dates: start: 20011101, end: 20030126
  2. CELEBREX [Suspect]
     Indication: JOINT INJURY
  3. VIOXX [Suspect]
     Indication: GOUT
     Dates: start: 20010501, end: 20030126
  4. VIOXX [Suspect]
     Indication: JOINT INJURY

REACTIONS (2)
  - MYOCARDIAL INFARCTION [None]
  - PULMONARY EMBOLISM [None]
